FAERS Safety Report 7470213-3 (Version None)
Quarter: 2011Q2

REPORT INFORMATION
  Report Type: 
  Country: None (occurrence: None)
  Receive Date: 20110510
  Receipt Date: 20110509
  Transmission Date: 20111010
  Serious: Yes (Other)
  Sender: FDA-Public Use
  Company Number: US-ROXANE LABORATORIES, INC.-2011-RO-00609RO

PATIENT
  Sex: Female
  Weight: 52 kg

DRUGS (14)
  1. SYNTHROID [Concomitant]
     Dosage: 50 MCG
  2. VOLTAREN [Concomitant]
     Indication: PAIN
  3. BONIVA [Concomitant]
     Dates: start: 20101001
  4. METFORMIN HCL [Concomitant]
     Dosage: 2000 MG
  5. ASPIRIN [Concomitant]
     Dosage: 81 MCG
  6. BILBERRY [Concomitant]
  7. DOCUSATE SODIUM [Concomitant]
     Indication: FAECES HARD
  8. VITAMIN B-12 [Concomitant]
  9. ACTOS [Suspect]
     Indication: TYPE 2 DIABETES MELLITUS
     Dosage: 30 MG
     Route: 048
     Dates: start: 20100101, end: 20101130
  10. BIOTIN [Concomitant]
  11. SIMVASTATIN [Concomitant]
     Dosage: 20 MG
  12. PREDNISONE [Suspect]
     Dates: start: 20101123
  13. GLUCOSAMINE [Concomitant]
  14. ULTRAM [Concomitant]
     Indication: PAIN

REACTIONS (9)
  - CARDIAC FAILURE [None]
  - POLLAKIURIA [None]
  - CYSTITIS [None]
  - DECREASED APPETITE [None]
  - DYSURIA [None]
  - URINE ODOUR ABNORMAL [None]
  - OEDEMA PERIPHERAL [None]
  - DYSPNOEA [None]
  - DEPRESSION [None]
